FAERS Safety Report 18516067 (Version 4)
Quarter: 2021Q1

REPORT INFORMATION
  Report Type: Spontaneous
  Country: US (occurrence: US)
  Receive Date: 20201118
  Receipt Date: 20210202
  Transmission Date: 20210419
  Serious: No
  Sender: FDA-Public Use
  Company Number: US-GLAXOSMITHKLINE-US2020AMR225328

PATIENT
  Age: 75 Year
  Sex: Female

DRUGS (2)
  1. ZEJULA [Suspect]
     Active Substance: NIRAPARIB
     Dosage: 200 MG
  2. ZEJULA [Suspect]
     Active Substance: NIRAPARIB
     Indication: FALLOPIAN TUBE CANCER
     Dosage: 200 MG, QD
     Route: 065
     Dates: start: 20201105

REACTIONS (10)
  - Pain in extremity [Recovering/Resolving]
  - Weight decreased [Unknown]
  - Constipation [Unknown]
  - Muscle spasms [Recovering/Resolving]
  - Bowel movement irregularity [Unknown]
  - Sinusitis [Unknown]
  - Tumour marker increased [Unknown]
  - Nausea [Unknown]
  - Pain [Unknown]
  - Burning sensation [Unknown]

NARRATIVE: CASE EVENT DATE: 202011
